FAERS Safety Report 13023045 (Version 1)
Quarter: 2016Q4

REPORT INFORMATION
  Report Type: Spontaneous
  Country: US (occurrence: US)
  Receive Date: 20161213
  Receipt Date: 20161213
  Transmission Date: 20170207
  Serious: No
  Sender: FDA-Public Use
  Company Number: US-TEVA-610066USA

PATIENT
  Sex: Male

DRUGS (1)
  1. AZITHROMYCIN ANHYDROUS. [Suspect]
     Active Substance: AZITHROMYCIN ANHYDROUS
     Indication: CHLAMYDIAL INFECTION
     Dosage: 2000 MILLIGRAM DAILY;
     Route: 065
     Dates: start: 20151105

REACTIONS (9)
  - Diarrhoea [Unknown]
  - Skin fissures [Unknown]
  - Product formulation issue [Unknown]
  - Proctalgia [Unknown]
  - Dry skin [Unknown]
  - Drug ineffective [Unknown]
  - Balanoposthitis [Unknown]
  - Urinary incontinence [Unknown]
  - Product coating issue [Unknown]

NARRATIVE: CASE EVENT DATE: 20151105
